FAERS Safety Report 4353524-X (Version None)
Quarter: 2004Q2

REPORT INFORMATION
  Report Type: 
  Country: None (occurrence: None)
  Receive Date: 20040430
  Receipt Date: 20040417
  Transmission Date: 20050107
  Serious: Yes (Other)
  Sender: FDA-Public Use
  Company Number: 2004014820

PATIENT
  Sex: Male

DRUGS (2)
  1. DILANTIN KAPSEAL [Suspect]
     Indication: GRAND MAL CONVULSION
     Dosage: ORAL
     Route: 048
     Dates: start: 20021001
  2. VALPROATE SODIUM [Concomitant]

REACTIONS (2)
  - GRAND MAL CONVULSION [None]
  - TREATMENT NONCOMPLIANCE [None]
